FAERS Safety Report 4488628-4 (Version None)
Quarter: 2004Q4

REPORT INFORMATION
  Report Type: 
  Country: None (occurrence: None)
  Receive Date: 20041026
  Receipt Date: 20041008
  Transmission Date: 20050328
  Serious: Yes (Hospitalization)
  Sender: FDA-Public Use
  Company Number: USA041080580

PATIENT
  Age: 78 Year
  Sex: Female
  Weight: 101 kg

DRUGS (1)
  1. HUMULIN 70/30 [Suspect]
     Indication: DIABETES MELLITUS
     Dosage: 29 U DAY
     Dates: start: 19920101

REACTIONS (6)
  - ANGIOPATHY [None]
  - CARDIAC FAILURE CONGESTIVE [None]
  - COUGH [None]
  - MYOCARDIAL INFARCTION [None]
  - PAIN IN EXTREMITY [None]
  - WEIGHT DECREASED [None]
